FAERS Safety Report 5250979-3 (Version None)
Quarter: 2007Q1

REPORT INFORMATION
  Report Type: 
  Country: None (occurrence: None)
  Receive Date: 20070228
  Receipt Date: 20060803
  Transmission Date: 20070707
  Serious: No
  Sender: FDA-Public Use
  Company Number: US-GLAXOSMITHKLINE-A0615080A

PATIENT
  Age: 41 Year
  Sex: Female

DRUGS (3)
  1. LAMICTAL [Suspect]
     Dosage: 50MG TWICE PER DAY
     Route: 048
     Dates: start: 20060709, end: 20060802
  2. DEPAKOTE [Concomitant]
     Route: 065
  3. THYROID TAB [Concomitant]

REACTIONS (2)
  - BALANCE DISORDER [None]
  - COORDINATION ABNORMAL [None]
